FAERS Safety Report 17452444 (Version 2)
Quarter: 2020Q1

REPORT INFORMATION
  Report Type: Spontaneous
  Country: IE (occurrence: IE)
  Receive Date: 20200224
  Receipt Date: 20200325
  Transmission Date: 20200409
  Serious: Yes (Hospitalization, Other)
  Sender: FDA-Public Use
  Company Number: IE-MYLANLABS-2020M1018748

PATIENT
  Age: 50 Year
  Sex: Male

DRUGS (23)
  1. KETAMINE [Suspect]
     Active Substance: KETAMINE
     Indication: PAIN
     Dosage: 100 MG, PER DAY
     Route: 058
  2. DULOXETINE. [Suspect]
     Active Substance: DULOXETINE
     Indication: PAIN
     Dosage: 60MG IN THE MORNING, 30MG IN THE AFTERNOON
  3. DULOXETINE. [Suspect]
     Active Substance: DULOXETINE
     Dosage: 60 MG IN THE MORNING + 30MG IN THE EVENING, PER DAY
  4. PREGABALIN. [Suspect]
     Active Substance: PREGABALIN
     Indication: PAIN
     Dosage: 300 MG, 2X PER DAY
  5. OXYCODONE [Suspect]
     Active Substance: OXYCODONE
     Dosage: 120 MG, 2X PER DAY
     Route: 048
  6. AMITRIPTYLINE [Suspect]
     Active Substance: AMITRIPTYLINE
     Indication: PAIN
     Dosage: 10 MG IN THE EVENING, PER DAY
  7. DULOXETINE. [Suspect]
     Active Substance: DULOXETINE
     Dosage: UNK
  8. KETAMINE [Suspect]
     Active Substance: KETAMINE
     Dosage: 45 MG, 3X PER DAY
  9. OXYCODONE [Suspect]
     Active Substance: OXYCODONE
     Indication: PAIN
     Dosage: 210 MG, 2X PER DAY
     Route: 048
  10. AMITRIPTYLINE [Suspect]
     Active Substance: AMITRIPTYLINE
     Dosage: 25 MG IN THE EVENING, PER DAY
  11. KETAMINE [Suspect]
     Active Substance: KETAMINE
     Indication: PAIN
     Dosage: 500 MG, PER DAY
  12. KETAMINE [Suspect]
     Active Substance: KETAMINE
     Dosage: 40 MG, 3X PER DAY
  13. OXYCODONE [Suspect]
     Active Substance: OXYCODONE
     Dosage: 70 MG, 2X PER DAY
     Route: 048
  14. AMITRIPTYLINE [Suspect]
     Active Substance: AMITRIPTYLINE
     Dosage: 100 MG IN THE EVENING
  15. HALOPERIDOL. [Suspect]
     Active Substance: HALOPERIDOL
     Indication: HALLUCINATION
     Dosage: UNK
  16. CLONAZEPAM. [Suspect]
     Active Substance: CLONAZEPAM
     Indication: PAIN
     Dosage: 1 MG IN THE EVENING
  17. AMITRIPTYLINE [Suspect]
     Active Substance: AMITRIPTYLINE
     Dosage: 10 MG IN THE EVENING
  18. METHADONE HYDROCHLORIDE. [Suspect]
     Active Substance: METHADONE HYDROCHLORIDE
     Indication: PAIN
     Dosage: 70 MG, 2X PER DAY
  19. METHADONE HYDROCHLORIDE. [Suspect]
     Active Substance: METHADONE HYDROCHLORIDE
     Dosage: 100 MG, 2X PER DAY
  20. METHADONE HYDROCHLORIDE. [Suspect]
     Active Substance: METHADONE HYDROCHLORIDE
     Dosage: 220 MG, 2X PER DAY
  21. METHADONE HYDROCHLORIDE. [Suspect]
     Active Substance: METHADONE HYDROCHLORIDE
     Dosage: 20 MG, 2X PER DAY
  22. DULOXETINE. [Suspect]
     Active Substance: DULOXETINE
     Dosage: 60 MG PER DAY
  23. KETAMINE [Suspect]
     Active Substance: KETAMINE
     Indication: PRODUCT USED FOR UNKNOWN INDICATION
     Dosage: 10 MG, 3X PER DAY
     Route: 048

REACTIONS (4)
  - Abnormal dreams [Unknown]
  - Hallucination [Unknown]
  - Drug ineffective [Recovered/Resolved]
  - Toxicity to various agents [Unknown]
